FAERS Safety Report 15294455 (Version 1)
Quarter: 2018Q3

REPORT INFORMATION
  Report Type: Spontaneous
  Country: US (occurrence: US)
  Receive Date: 20180807
  Receipt Date: 20180807
  Transmission Date: 20181010
  Serious: Yes (Other)
  Sender: FDA-Public Use
  Company Number: None

PATIENT
  Age: 27 Year
  Sex: Female
  Weight: 87 kg

DRUGS (6)
  1. PLASMA?LYTE IV SOLUTION [Concomitant]
     Dates: start: 20180807, end: 20180807
  2. MARCAINE SPINAL [Suspect]
     Active Substance: BUPIVACAINE HYDROCHLORIDE
     Indication: SPINAL ANAESTHESIA
     Dosage: ?          OTHER FREQUENCY:ONCE;?
     Route: 024
     Dates: start: 20180807, end: 20180807
  3. CEFAZOLIN 2 GRAMS ONCE [Concomitant]
     Dates: start: 20180807, end: 20180807
  4. METOCLOPRAMIDE 10 MG IV PUSH ONCE [Concomitant]
     Dates: start: 20180807, end: 20180807
  5. MARCAINE SPINAL [Suspect]
     Active Substance: BUPIVACAINE HYDROCHLORIDE
     Indication: CAESAREAN SECTION
     Dosage: ?          OTHER FREQUENCY:ONCE;?
     Route: 024
     Dates: start: 20180807, end: 20180807
  6. FAMOTIDINE 20 MG IV PUSH ONCE [Concomitant]
     Dates: start: 20180807, end: 20180807

REACTIONS (2)
  - Drug ineffective [None]
  - Caesarean section [None]

NARRATIVE: CASE EVENT DATE: 20180807
